FAERS Safety Report 7807021-7 (Version None)
Quarter: 2011Q4

REPORT INFORMATION
  Report Type: 
  Country: None (occurrence: None)
  Receive Date: 20111011
  Receipt Date: 20111004
  Transmission Date: 20120403
  Serious: Yes (Hospitalization, Other)
  Sender: FDA-Public Use
  Company Number: US-AMGEN-USASP2011051373

PATIENT
  Age: 58 Year
  Sex: Female

DRUGS (4)
  1. ANTIFUNGALS [Concomitant]
  2. ENBREL [Suspect]
     Indication: RHEUMATOID ARTHRITIS
     Dosage: 50 MG, QWK
     Dates: start: 20091228, end: 20110601
  3. METHOTREXATE [Concomitant]
  4. PLAQUENIL [Concomitant]
     Dosage: UNK

REACTIONS (11)
  - HEART RATE INCREASED [None]
  - DYSPNOEA [None]
  - HYPOAESTHESIA [None]
  - FUNGAL INFECTION [None]
  - EYE SWELLING [None]
  - MENSTRUAL DISORDER [None]
  - FATIGUE [None]
  - BRONCHITIS [None]
  - RHEUMATOID ARTHRITIS [None]
  - SWELLING FACE [None]
  - FEELING HOT [None]
